FAERS Safety Report 6375227-2 (Version None)
Quarter: 2009Q3

REPORT INFORMATION
  Report Type: 
  Country: None (occurrence: None)
  Receive Date: 20090924
  Receipt Date: 20090914
  Transmission Date: 20100115
  Serious: Yes (Other)
  Sender: FDA-Public Use
  Company Number: AT-PFIZER INC-2009249797

PATIENT
  Age: 67 Year

DRUGS (1)
  1. SUTENT [Suspect]
     Indication: METASTATIC RENAL CELL CARCINOMA
     Dosage: 50 MG, CYCLIC
     Route: 048

REACTIONS (1)
  - CHOLECYSTITIS [None]
